FAERS Safety Report 25996179 (Version 1)
Quarter: 2025Q4

REPORT INFORMATION
  Report Type: Spontaneous
  Country: US (occurrence: US)
  Receive Date: 20251104
  Receipt Date: 20251104
  Transmission Date: 20260118
  Serious: Yes (Death)
  Sender: OTSUKA
  Company Number: US-MMM-Otsuka-0KW92AZ5

PATIENT
  Sex: Female
  Weight: 63.49 kg

DRUGS (1)
  1. NUEDEXTA [Suspect]
     Active Substance: DEXTROMETHORPHAN HYDROBROMIDE\QUINIDINE SULFATE
     Indication: Senile dementia
     Dosage: UNK

REACTIONS (2)
  - Death [Fatal]
  - Off label use [Unknown]

NARRATIVE: CASE EVENT DATE: 20180101
